FAERS Safety Report 11418746 (Version 2)
Quarter: 2015Q3

REPORT INFORMATION
  Report Type: Spontaneous
  Country: US (occurrence: US)
  Receive Date: 20150826
  Receipt Date: 20150831
  Transmission Date: 20151125
  Serious: Yes (Disabling, Other)
  Sender: FDA-Public Use
  Company Number: US-DRREDDYS-USA/USA/15/0050238

PATIENT
  Age: 39 Year
  Sex: Female
  Weight: 80.73 kg

DRUGS (1)
  1. HABITROL [Suspect]
     Active Substance: NICOTINE
     Indication: SMOKING CESSATION THERAPY
     Route: 062

REACTIONS (5)
  - Drug effect increased [Unknown]
  - Disability [Unknown]
  - Loss of consciousness [Unknown]
  - Dehydration [Recovered/Resolved]
  - Hypersensitivity [Unknown]
